FAERS Safety Report 5205895-X (Version None)
Quarter: 2007Q1

REPORT INFORMATION
  Report Type: 
  Country: None (occurrence: None)
  Receive Date: 20070111
  Receipt Date: 20070103
  Transmission Date: 20070707
  Serious: Yes (Hospitalization, Other)
  Sender: FDA-Public Use
  Company Number: US-AMGEN-STX203783

PATIENT
  Sex: Female

DRUGS (3)
  1. ENBREL [Suspect]
     Indication: PSORIASIS
     Route: 058
     Dates: start: 20050101, end: 20061101
  2. DDAVP [Concomitant]
  3. ASCORBIC ACID [Concomitant]

REACTIONS (6)
  - CYST [None]
  - DIVERTICULAR PERFORATION [None]
  - INTESTINAL PERFORATION [None]
  - LARGE INTESTINAL ULCER HAEMORRHAGE [None]
  - PSORIASIS [None]
  - SYNCOPE [None]
